FAERS Safety Report 4283161-7 (Version None)
Quarter: 2004Q1

REPORT INFORMATION
  Report Type: 
  Country: None (occurrence: None)
  Receive Date: 20040121
  Receipt Date: 20040113
  Transmission Date: 20041129
  Serious: Yes (Hospitalization)
  Sender: FDA-Public Use
  Company Number: SAGL/03/23/LIT

PATIENT
  Age: 55 Year
  Sex: Male

DRUGS (5)
  1. SANDOGLOBULIN [Suspect]
     Indication: NEUROPATHY PERIPHERAL
     Dosage: SEE IMAGE
     Dates: start: 20010101, end: 20010101
  2. SANDOGLOBULIN [Suspect]
     Indication: NEUROPATHY PERIPHERAL
     Dosage: SEE IMAGE
     Dates: start: 20020101
  3. WARFARIN SODIUM [Concomitant]
  4. ACETAMINOPHEN W/OXYCODONE (OXYCOCET) [Concomitant]
  5. AMITRIPTYLINE HCL [Concomitant]

REACTIONS (7)
  - ACTIVATED PARTIAL THROMBOPLASTIN TIME PROLONGED [None]
  - CHEST PAIN [None]
  - DYSPNOEA [None]
  - INTERNATIONAL NORMALISED RATIO DECREASED [None]
  - PULMONARY EMBOLISM [None]
  - THROMBOSIS [None]
  - VENOUS OCCLUSION [None]
